FAERS Safety Report 9176459 (Version 1)
Quarter: 2013Q1

REPORT INFORMATION
  Report Type: Spontaneous
  Country: US (occurrence: None)
  Receive Date: 20130320
  Receipt Date: 20130320
  Transmission Date: 20140127
  Serious: Yes (Hospitalization)
  Sender: FDA-Public Use
  Company Number: None

PATIENT
  Sex: Male
  Weight: 99.79 kg

DRUGS (1)
  1. DIVALPROEX SODIUM DELAYED RELEASE [Suspect]
     Dosage: WHEN BRAND NAME NOT AVAILABLE
     Route: 048

REACTIONS (4)
  - Product substitution issue [None]
  - General physical health deterioration [None]
  - Anxiety [None]
  - Mania [None]
